FAERS Safety Report 6104423-4 (Version None)
Quarter: 2009Q1

REPORT INFORMATION
  Report Type: 
  Country: None (occurrence: None)
  Receive Date: 20090305
  Receipt Date: 20090302
  Transmission Date: 20090719
  Serious: No
  Sender: FDA-Public Use
  Company Number: JP-EISAI MEDICAL RESEARCH-E2020-04134-SPO-JP

PATIENT
  Age: 87 Year
  Sex: Female
  Weight: 42 kg

DRUGS (10)
  1. ARICEPT [Suspect]
     Route: 048
     Dates: start: 20030101, end: 20080519
  2. NORVASC [Concomitant]
     Route: 048
  3. EPADEL [Concomitant]
     Route: 048
  4. JUVELA [Concomitant]
     Route: 048
  5. KETAS [Concomitant]
     Route: 048
  6. PURSENNID [Concomitant]
     Route: 048
  7. BIOFERMIN [Concomitant]
     Route: 048
  8. GASCON [Concomitant]
     Route: 048
  9. MAGLAX [Concomitant]
     Route: 048
  10. SP TROUCHES MEIJI [Concomitant]
     Route: 048

REACTIONS (1)
  - CHOLESTATIC LIVER INJURY [None]
